FAERS Safety Report 9806039 (Version 2)
Quarter: 2014Q1

REPORT INFORMATION
  Report Type: Spontaneous
  Country: US (occurrence: US)
  Receive Date: 20140109
  Receipt Date: 20140115
  Transmission Date: 20141002
  Serious: Yes (Hospitalization, Other)
  Sender: FDA-Public Use
  Company Number: US-RB-061588-13

PATIENT
  Sex: Female

DRUGS (1)
  1. MUCINEX FAST MAX DM LIQUID [Suspect]
     Indication: PRODUCT USED FOR UNKNOWN INDICATION
     Dosage: 20 ML EVERY 4 HOURS
     Route: 048
     Dates: start: 20131224

REACTIONS (6)
  - Pneumonia bacterial [Not Recovered/Not Resolved]
  - Akinesia [Unknown]
  - Dysstasia [Unknown]
  - Condition aggravated [Unknown]
  - Somnolence [Unknown]
  - Unevaluable event [Unknown]
